FAERS Safety Report 20018701 (Version 3)
Quarter: 2022Q1

REPORT INFORMATION
  Report Type: Spontaneous
  Country: US (occurrence: US)
  Receive Date: 20211101
  Receipt Date: 20220202
  Transmission Date: 20220423
  Serious: No
  Sender: FDA-Public Use
  Company Number: US-BIOGEN-2021BI01063050

PATIENT
  Sex: Female

DRUGS (2)
  1. TECFIDERA [Suspect]
     Active Substance: DIMETHYL FUMARATE
     Indication: Multiple sclerosis
     Route: 065
     Dates: start: 20130716, end: 20130722
  2. TECFIDERA [Suspect]
     Active Substance: DIMETHYL FUMARATE
     Route: 065
     Dates: start: 20130716, end: 202109

REACTIONS (7)
  - Illness [Not Recovered/Not Resolved]
  - Headache [Unknown]
  - Gastric disorder [Unknown]
  - Gastrointestinal infection [Recovered/Resolved]
  - Nausea [Not Recovered/Not Resolved]
  - Flushing [Unknown]
  - Abdominal pain upper [Unknown]
